FAERS Safety Report 7035861 (Version 8)
Quarter: 2015Q3

REPORT INFORMATION
  Report Type: Report from Study
  Country: JP (occurrence: JP)
  Receive Date: 20090629
  Receipt Date: 20150702
  Transmission Date: 20151125
  Serious: Yes (Death, Hospitalization, Other)
  Sender: FDA-Public Use
  Company Number: PHHO2009JP01243

PATIENT
  Age: 71 Year
  Sex: Female
  Weight: 50 kg

DRUGS (10)
  1. ICL670A [Suspect]
     Active Substance: DEFERASIROX
     Dosage: 10 MG/KG, QD
     Route: 048
     Dates: start: 20080814, end: 20080924
  2. ICL670A [Suspect]
     Active Substance: DEFERASIROX
     Indication: HAEMOSIDEROSIS
     Dosage: 20 MG/KG, UNK
     Route: 048
     Dates: start: 20080716
  3. ICL670A [Suspect]
     Active Substance: DEFERASIROX
     Dosage: 20 MG/KG, QD
     Route: 048
     Dates: start: 20080717, end: 20080813
  4. ICL670A [Suspect]
     Active Substance: DEFERASIROX
     Dosage: 20 MG/KG, QD
     Route: 048
     Dates: start: 20090317, end: 20090602
  5. ICL670A [Suspect]
     Active Substance: DEFERASIROX
     Dosage: 20 MG/KG, QD
     Route: 048
     Dates: start: 20080925, end: 20081112
  6. ICL670A [Suspect]
     Active Substance: DEFERASIROX
     Dosage: 10 MG/KG, QD
     Route: 048
     Dates: start: 20081113, end: 20090118
  7. NEORAL [Suspect]
     Active Substance: CYCLOSPORINE
     Indication: MYELODYSPLASTIC SYNDROME
     Dosage: 100 MG, UNK
     Route: 048
     Dates: start: 20080910, end: 20090118
  8. ICL670A [Suspect]
     Active Substance: DEFERASIROX
     Dosage: 20 MG/KG, UNK
     Route: 048
     Dates: start: 20090611, end: 20090619
  9. VFEND [Suspect]
     Active Substance: VORICONAZOLE
     Indication: PRODUCT USED FOR UNKNOWN INDICATION
     Route: 065
  10. NEORAL [Suspect]
     Active Substance: CYCLOSPORINE
     Dosage: 50 MG, BID
     Route: 048
     Dates: start: 20080910, end: 20090118

REACTIONS (38)
  - Lung disorder [Fatal]
  - Oedema peripheral [Unknown]
  - Pain in extremity [Unknown]
  - Dehydration [Unknown]
  - Pneumonia [Recovered/Resolved]
  - Pulmonary mass [Fatal]
  - Candida infection [Fatal]
  - Aspartate aminotransferase increased [Not Recovered/Not Resolved]
  - Malaise [Fatal]
  - Staphylococcal infection [Fatal]
  - Dyspnoea [Fatal]
  - C-reactive protein increased [Recovering/Resolving]
  - Alanine aminotransferase increased [Not Recovered/Not Resolved]
  - Lung infiltration [Fatal]
  - Pleural effusion [Fatal]
  - Bronchopulmonary aspergillosis [Fatal]
  - Hypertrophy [Fatal]
  - Chest pain [Fatal]
  - Blood creatinine increased [Recovered/Resolved]
  - Cellulitis [Unknown]
  - Haemoptysis [Fatal]
  - Respiratory failure [Fatal]
  - Hepatic function abnormal [Not Recovered/Not Resolved]
  - Abnormal behaviour [Unknown]
  - Pneumonia [Fatal]
  - Cough [Fatal]
  - Decreased appetite [Fatal]
  - Haematoma [Unknown]
  - Pyrexia [Fatal]
  - Inflammation [Fatal]
  - Depressed level of consciousness [Fatal]
  - Hallucination, auditory [Unknown]
  - Organising pneumonia [Fatal]
  - Ascites [Fatal]
  - Blood pressure decreased [Fatal]
  - Skin ulcer [Unknown]
  - Debridement [Not Recovered/Not Resolved]
  - Ammonia increased [Unknown]

NARRATIVE: CASE EVENT DATE: 20090115
